FAERS Safety Report 8416542 (Version 3)
Quarter: 2013Q1

REPORT INFORMATION
  Report Type: Spontaneous
  Country: US (occurrence: US)
  Receive Date: 20120220
  Receipt Date: 20130228
  Transmission Date: 20140127
  Serious: No
  Sender: FDA-Public Use
  Company Number: US-PFIZER INC-2012040920

PATIENT
  Age: 72 Year
  Sex: Male

DRUGS (12)
  1. AMIODARONE HCL [Suspect]
     Dosage: UNK
  2. CARVEDIOL [Concomitant]
     Dosage: UNK
  3. KLOR-CON [Concomitant]
     Dosage: UNK
  4. ASA [Concomitant]
     Dosage: UNK
  5. BENAZEPRIL [Concomitant]
     Dosage: UNK
  6. PLAVIX [Concomitant]
     Dosage: UNK
  7. FINASTERIDE [Concomitant]
     Dosage: UNK
  8. DIGOXIN [Concomitant]
     Dosage: UNK
  9. SIMVASTATIN [Concomitant]
     Dosage: UNK
  10. COUMADIN ^BOOTS^ [Concomitant]
     Dosage: UNK
  11. LASIX [Concomitant]
     Dosage: UNK
  12. METFORMIN [Concomitant]
     Dosage: UNK

REACTIONS (1)
  - Drug intolerance [Unknown]
